FAERS Safety Report 8925049 (Version 2)
Quarter: 2012Q4

REPORT INFORMATION
  Report Type: 
  Country: US (occurrence: US)
  Receive Date: 20121126
  Receipt Date: 20121203
  Transmission Date: 20130627
  Serious: Yes (Other)
  Sender: FDA-Public Use
  Company Number: US-ELI_LILLY_AND_COMPANY-US201211006180

PATIENT
  Sex: Female

DRUGS (5)
  1. HUMATROPE [Suspect]
     Indication: GROWTH RETARDATION
     Dosage: UNK, qd
     Route: 058
  2. LAMICTAL [Concomitant]
     Dosage: 100mg, twice daily
  3. DEPAKOTE [Concomitant]
     Dosage: 250mg, twice daily
  4. FOCALIN [Concomitant]
     Dosage: 20mg, daily
  5. MELATONIN [Concomitant]
     Dosage: 3mg, every night

REACTIONS (1)
  - Convulsion [Not Recovered/Not Resolved]
